FAERS Safety Report 10732455 (Version 8)
Quarter: 2019Q1

REPORT INFORMATION
  Report Type: Spontaneous
  Country: US (occurrence: US)
  Receive Date: 20150123
  Receipt Date: 20190318
  Transmission Date: 20190417
  Serious: Yes (Other)
  Sender: FDA-Public Use
  Company Number: US-PFIZER INC-2015022300

PATIENT
  Age: 74 Year
  Sex: Female
  Weight: 95 kg

DRUGS (3)
  1. REVATIO [Suspect]
     Active Substance: SILDENAFIL CITRATE
     Indication: PULMONARY ARTERIAL HYPERTENSION
     Dosage: 20 MG, 3X/DAY
     Route: 048
  2. COREG [Concomitant]
     Active Substance: CARVEDILOL
     Dosage: 12.5 MG, 2X/DAY
     Dates: start: 2009
  3. HYDROCHLOROTHIAZIDE AND LISINOPRIL [Concomitant]
     Active Substance: HYDROCHLOROTHIAZIDE\LISINOPRIL
     Dosage: 12.5 MG, 1X/DAY
     Dates: start: 2009

REACTIONS (9)
  - Influenza [Unknown]
  - Mouth swelling [Unknown]
  - Pain [Unknown]
  - Bone loss [Unknown]
  - Oral pain [Unknown]
  - Fall [Recovering/Resolving]
  - Hangnail [Unknown]
  - Cough [Recovered/Resolved]
  - Femur fracture [Recovering/Resolving]

NARRATIVE: CASE EVENT DATE: 20150116
